FAERS Safety Report 7895045-3 (Version None)
Quarter: 2011Q4

REPORT INFORMATION
  Report Type: 
  Country: None (occurrence: None)
  Receive Date: 20111106
  Receipt Date: 20110822
  Transmission Date: 20120403
  Serious: No
  Sender: FDA-Public Use
  Company Number: US-AMGEN-USASP2011042675

PATIENT
  Sex: Female

DRUGS (5)
  1. TUMOR NECROSIS FACTOR ALPHA (TNF-ALPHA) INHIB [Concomitant]
     Indication: RHEUMATOID ARTHRITIS
     Dosage: UNK
  2. ENBREL [Suspect]
     Indication: RHEUMATOID ARTHRITIS
     Dosage: UNK
  3. NSAID'S [Concomitant]
     Indication: RHEUMATOID ARTHRITIS
     Dosage: UNK
  4. SYNTHROID [Concomitant]
     Dosage: UNK
  5. ANTIHYPERTENSIVES [Concomitant]
     Dosage: UNK

REACTIONS (5)
  - ARTHRALGIA [None]
  - RHEUMATOID ARTHRITIS [None]
  - BED REST [None]
  - HYPERSENSITIVITY [None]
  - PRURITUS [None]
